FAERS Safety Report 9571880 (Version 1)
Quarter: 2013Q4

REPORT INFORMATION
  Report Type: Report from Study
  Country: US (occurrence: US)
  Receive Date: 20131001
  Receipt Date: 20131001
  Transmission Date: 20140711
  Serious: No
  Sender: FDA-Public Use
  Company Number: US-ABBVIE-12P-163-1016021-00

PATIENT
  Age: 46 Year
  Sex: Male
  Weight: 68.1 kg

DRUGS (2)
  1. KALETRA TABLETS 200/50 [Suspect]
     Indication: HIV INFECTION
     Dosage: 200/50
     Dates: start: 2005
  2. EPICOM [Concomitant]
     Indication: HIV INFECTION

REACTIONS (2)
  - Viral load decreased [Not Recovered/Not Resolved]
  - Drug ineffective [Not Recovered/Not Resolved]
